FAERS Safety Report 20677273 (Version 7)
Quarter: 2025Q1

REPORT INFORMATION
  Report Type: Report from Study
  Country: US (occurrence: US)
  Receive Date: 20220406
  Receipt Date: 20250331
  Transmission Date: 20250408
  Serious: Yes (Hospitalization, Other)
  Sender: TAKEDA
  Company Number: US-TAKEDA-2022TUS021872

PATIENT
  Age: 76 Year
  Sex: Female
  Weight: 51 kg

DRUGS (29)
  1. TEDUGLUTIDE [Suspect]
     Active Substance: TEDUGLUTIDE
     Indication: Short-bowel syndrome
     Dosage: 2.35 MILLIGRAM, QD
  2. TEDUGLUTIDE [Suspect]
     Active Substance: TEDUGLUTIDE
     Indication: Crohn^s disease
     Dosage: 2.4 MILLIGRAM, QD
  3. TEDUGLUTIDE [Suspect]
     Active Substance: TEDUGLUTIDE
     Indication: Illness
     Dosage: 2.4 MILLIGRAM, QD
  4. TEDUGLUTIDE [Suspect]
     Active Substance: TEDUGLUTIDE
     Dosage: 2.4 MILLIGRAM, QD
  5. TEDUGLUTIDE [Suspect]
     Active Substance: TEDUGLUTIDE
     Dosage: 2.4 MILLIGRAM, QD
  6. TEDUGLUTIDE [Suspect]
     Active Substance: TEDUGLUTIDE
     Dosage: 2.4 MILLIGRAM, QD
  7. PROZAC [Concomitant]
     Active Substance: FLUOXETINE HYDROCHLORIDE
  8. PROMETHAZINE HYDROCHLORIDE [Concomitant]
     Active Substance: PROMETHAZINE HYDROCHLORIDE
  9. ALOSETRON HYDROCHLORIDE [Concomitant]
     Active Substance: ALOSETRON HYDROCHLORIDE
  10. SODIUM BICARBONATE [Concomitant]
     Active Substance: SODIUM BICARBONATE
  11. CEPHALEXIN [Concomitant]
     Active Substance: CEPHALEXIN
  12. MONTELUKAST SODIUM [Concomitant]
     Active Substance: MONTELUKAST SODIUM
  13. AZITHROMYCIN [Concomitant]
     Active Substance: AZITHROMYCIN
  14. VALSARTAN [Concomitant]
     Active Substance: VALSARTAN
  15. RESTASIS [Concomitant]
     Active Substance: CYCLOSPORINE
  16. TRAZODONE HCL [Concomitant]
     Active Substance: TRAZODONE HYDROCHLORIDE
  17. CYMBALTA [Concomitant]
     Active Substance: DULOXETINE HYDROCHLORIDE
  18. ONDANSETRON HYDROCHLORIDE [Concomitant]
     Active Substance: ONDANSETRON HYDROCHLORIDE
  19. METOCLOPRAMIDE HYDROCHLORIDE [Concomitant]
     Active Substance: METOCLOPRAMIDE HYDROCHLORIDE
  20. SCOPOLAMINE [Concomitant]
     Active Substance: SCOPOLAMINE
  21. GABAPENTIN [Concomitant]
     Active Substance: GABAPENTIN
  22. PRAMIPEXOLE DIHYDROCHLORIDE [Concomitant]
     Active Substance: PRAMIPEXOLE DIHYDROCHLORIDE
  23. HUMIRA [Concomitant]
     Active Substance: ADALIMUMAB
  24. OMEPRAZOLE AND SODIUM BICARBONATE [Concomitant]
     Active Substance: OMEPRAZOLE\SODIUM BICARBONATE
  25. DIAZEPAM [Concomitant]
     Active Substance: DIAZEPAM
  26. LOMOTIL [Concomitant]
     Active Substance: ATROPINE SULFATE\DIPHENOXYLATE HYDROCHLORIDE
  27. ESCITALOPRAM OXALATE [Concomitant]
     Active Substance: ESCITALOPRAM OXALATE
  28. DIPHENHYDRAMINE HYDROCHLORIDE [Concomitant]
     Active Substance: DIPHENHYDRAMINE HYDROCHLORIDE
  29. FUROSEMIDE [Concomitant]
     Active Substance: FUROSEMIDE

REACTIONS (22)
  - Crohn^s disease [Unknown]
  - Inflammation [Unknown]
  - Benign vaginal neoplasm [Unknown]
  - Pneumonia [Unknown]
  - Blood sodium decreased [Recovering/Resolving]
  - Blood potassium decreased [Unknown]
  - Blood electrolytes decreased [Unknown]
  - Blood pressure decreased [Recovering/Resolving]
  - Tremor [Unknown]
  - Intestinal obstruction [Unknown]
  - Diarrhoea [Unknown]
  - Peripheral swelling [Unknown]
  - Weight increased [Unknown]
  - Blood magnesium decreased [Recovering/Resolving]
  - Bronchitis [Unknown]
  - Asthma [Unknown]
  - Somnolence [Unknown]
  - Viral infection [Unknown]
  - Feeding disorder [Unknown]
  - Weight fluctuation [Unknown]
  - Product dose omission issue [Unknown]
  - Upper respiratory tract infection [Unknown]

NARRATIVE: CASE EVENT DATE: 20250130
